FAERS Safety Report 5655439-3 (Version None)
Quarter: 2008Q1

REPORT INFORMATION
  Report Type: 
  Country: None (occurrence: None)
  Receive Date: 20080307
  Receipt Date: 20080226
  Transmission Date: 20080703
  Serious: Yes (Other)
  Sender: FDA-Public Use
  Company Number: PE-BRISTOL-MYERS SQUIBB COMPANY-14091631

PATIENT
  Age: 29 Year
  Sex: Male

DRUGS (2)
  1. TRUVADA [Suspect]
     Dosage: TENOFOVIR-EMTRICITABINE 300/200 MG
     Route: 048
     Dates: start: 20060614, end: 20080222
  2. KALETRA [Suspect]
     Dosage: 1 DOSAGE FORM = 800/200MG
     Route: 048
     Dates: start: 20060614, end: 20080222

REACTIONS (1)
  - RHABDOMYOLYSIS [None]
